FAERS Safety Report 16152495 (Version 1)
Quarter: 2019Q2

REPORT INFORMATION
  Report Type: Spontaneous
  Country: HU (occurrence: HU)
  Receive Date: 20190403
  Receipt Date: 20190403
  Transmission Date: 20190711
  Serious: Yes (Other)
  Sender: FDA-Public Use
  Company Number: HU-ACCORD-116876

PATIENT
  Age: 40 Year
  Sex: Female

DRUGS (4)
  1. EXEMESTANE. [Suspect]
     Active Substance: EXEMESTANE
     Indication: PERIORBITAL CELLULITIS
     Dosage: UNK
     Route: 065
     Dates: start: 201710
  2. EVEROLIMUS. [Suspect]
     Active Substance: EVEROLIMUS
     Indication: INVASIVE LOBULAR BREAST CARCINOMA
     Dosage: UNK
     Route: 065
     Dates: start: 201710
  3. LETROZOLE. [Suspect]
     Active Substance: LETROZOLE
     Indication: INVASIVE LOBULAR BREAST CARCINOMA
     Dosage: UNK
     Route: 065
     Dates: start: 2013
  4. VINORELBINE [Suspect]
     Active Substance: VINORELBINE\VINORELBINE TARTRATE
     Indication: BREAST CANCER METASTATIC
     Dosage: UNK
     Route: 065

REACTIONS (9)
  - Erythema of eyelid [Recovering/Resolving]
  - Abdominal lymphadenopathy [Recovering/Resolving]
  - Breast cancer metastatic [Recovering/Resolving]
  - Eyelid oedema [Recovering/Resolving]
  - Periorbital cellulitis [Recovering/Resolving]
  - Condition aggravated [Recovering/Resolving]
  - Metastases to skin [Recovering/Resolving]
  - Malignant neoplasm progression [Recovering/Resolving]
  - Cellulitis [Recovering/Resolving]
